FAERS Safety Report 6644822-5 (Version None)
Quarter: 2010Q1

REPORT INFORMATION
  Report Type: 
  Country: None (occurrence: None)
  Receive Date: 20100322
  Receipt Date: 20100319
  Transmission Date: 20100710
  Serious: Yes (Other)
  Sender: FDA-Public Use
  Company Number: GXKR2010DE03203

PATIENT
  Age: 91 Year
  Sex: Female

DRUGS (1)
  1. METOPROLOL SUCCINATE [Suspect]
     Dosage: 47.5 MG, UNK
     Route: 048

REACTIONS (3)
  - AGGRESSION [None]
  - DEMENTIA [None]
  - DEPRESSION [None]
